FAERS Safety Report 13597966 (Version 2)
Quarter: 2017Q2

REPORT INFORMATION
  Report Type: Spontaneous
  Country: US (occurrence: US)
  Receive Date: 20170531
  Receipt Date: 20170605
  Transmission Date: 20170830
  Serious: No
  Sender: FDA-Public Use
  Company Number: US-BAYER-2017-087353

PATIENT

DRUGS (2)
  1. CITRACAL PETITES [Suspect]
     Active Substance: CALCIUM CITRATE
     Dosage: UNK
     Route: 048
  2. BAYER LOW DOSE [Suspect]
     Active Substance: ASPIRIN
     Dosage: UNK

REACTIONS (2)
  - Adverse event [Unknown]
  - Extra dose administered [Unknown]
